FAERS Safety Report 6824446-7 (Version None)
Quarter: 2010Q3

REPORT INFORMATION
  Report Type: 
  Country: None (occurrence: None)
  Receive Date: 20100708
  Receipt Date: 20061027
  Transmission Date: 20110219
  Serious: No
  Sender: FDA-Public Use
  Company Number: US-PFIZER INC-2006133365

PATIENT
  Sex: Female
  Weight: 71.21 kg

DRUGS (6)
  1. CHANTIX [Suspect]
     Indication: SMOKING CESSATION THERAPY
     Dates: start: 20061021
  2. NASACORT [Concomitant]
  3. ADVAIR DISKUS 100/50 [Concomitant]
     Dates: start: 20060101
  4. DARIFENACIN [Concomitant]
  5. SYNTHROID [Concomitant]
  6. CYTOMEL [Concomitant]

REACTIONS (2)
  - ANXIETY [None]
  - WEIGHT INCREASED [None]
